FAERS Safety Report 11563505 (Version 1)
Quarter: 2015Q3

REPORT INFORMATION
  Report Type: Spontaneous
  Country: US (occurrence: US)
  Receive Date: 20150916
  Receipt Date: 20150916
  Transmission Date: 20151125
  Serious: No
  Sender: FDA-Public Use
  Company Number: US-ELI_LILLY_AND_COMPANY-US200902000448

PATIENT
  Age: 80 Year
  Sex: Female

DRUGS (2)
  1. CEFDINIR. [Concomitant]
     Active Substance: CEFDINIR
     Indication: UPPER RESPIRATORY TRACT INFECTION
     Dosage: 300 MG, 2/D
  2. FORTEO [Suspect]
     Active Substance: TERIPARATIDE
     Indication: OSTEOPOROSIS
     Dosage: UNK, UNK
     Dates: start: 20080713

REACTIONS (3)
  - Upper respiratory tract infection [Not Recovered/Not Resolved]
  - Dizziness [Not Recovered/Not Resolved]
  - Rhinorrhoea [Not Recovered/Not Resolved]

NARRATIVE: CASE EVENT DATE: 20090129
